FAERS Safety Report 8459547-3 (Version None)
Quarter: 2012Q2

REPORT INFORMATION
  Report Type: 
  Country: None (occurrence: None)
  Receive Date: 20120622
  Receipt Date: 20120615
  Transmission Date: 20120825
  Serious: Yes (Life-Threatening, Hospitalization, Other)
  Sender: FDA-Public Use
  Company Number: GB-PFIZER INC-IDA-00561

PATIENT
  Age: 47 Year
  Sex: Male

DRUGS (8)
  1. ORAMORPH SR [Concomitant]
  2. OCTENIDINE [Suspect]
     Dosage: 10 MG, 2X/DAY
     Route: 048
     Dates: start: 20051214, end: 20060126
  3. MORPHINE [Concomitant]
  4. PROPRANOLOL HCL [Suspect]
     Dosage: 10 MG, 2X/DAY
     Dates: start: 20051214, end: 20060126
  5. ZOPICLONE [Concomitant]
  6. SUNITINIB MALATE [Suspect]
     Indication: RENAL CELL CARCINOMA
     Dosage: 50 MG, 1X/DAY
     Route: 048
     Dates: start: 20060113, end: 20060125
  7. GABAPENTIN [Concomitant]
  8. PROZAC [Concomitant]

REACTIONS (18)
  - DIARRHOEA [None]
  - HYPOCALCAEMIA [None]
  - PARTIAL SEIZURES [None]
  - ABDOMINAL PAIN [None]
  - INTRACRANIAL PRESSURE INCREASED [None]
  - PUPILS UNEQUAL [None]
  - CARDIAC ENZYMES INCREASED [None]
  - PERICARDIAL EFFUSION [None]
  - CARDIAC ARREST [None]
  - RESUSCITATION [None]
  - ABDOMINAL PAIN UPPER [None]
  - VENTRICULAR TACHYCARDIA [None]
  - BLOOD PRESSURE FLUCTUATION [None]
  - HAEMATEMESIS [None]
  - ELECTROCARDIOGRAM QT PROLONGED [None]
  - TORSADE DE POINTES [None]
  - VOMITING [None]
  - NAUSEA [None]
